FAERS Safety Report 22093956 (Version 4)
Quarter: 2024Q1

REPORT INFORMATION
  Report Type: Report from Study
  Country: GB (occurrence: GB)
  Receive Date: 20230314
  Receipt Date: 20240205
  Transmission Date: 20240410
  Serious: Yes (Hospitalization, Other)
  Sender: FDA-Public Use
  Company Number: GB-ABBVIE-4129082

PATIENT
  Age: 65 Year
  Sex: Male

DRUGS (24)
  1. MIRTAZAPINE [Suspect]
     Active Substance: MIRTAZAPINE
     Indication: Affective disorder
     Dosage: 15 MILLIGRAM
     Route: 065
  2. CARBIDOPA\LEVODOPA [Suspect]
     Active Substance: CARBIDOPA\LEVODOPA
     Indication: Parkinson^s disease
     Dosage: UNK (20MGS/5MGS, START DATE: ??-???-2023))
     Route: 065
  3. CARBIDOPA\LEVODOPA [Suspect]
     Active Substance: CARBIDOPA\LEVODOPA
     Dosage: UNK (REDUCTION IN NIGHT TIME DOSES, START DATE: ??-???-2022)
     Route: 065
  4. CARBIDOPA\LEVODOPA [Suspect]
     Active Substance: CARBIDOPA\LEVODOPA
     Dosage: UNK (START DATE: OCT 2022) (MD:4.2MLS CR:4.2MLS ED:3.2MLS, 20MGS/5MGS, DISCONTINUED IN 2022
     Route: 065
  5. CARBIDOPA\LEVODOPA [Suspect]
     Active Substance: CARBIDOPA\LEVODOPA
     Dosage: UNK (DAY PUMP MD-4.2MLS, CR-6.5MLS, ED-3.9MLS. NIGHT PUMP- MD- 4.2MLS, CR-4.0MLS, ED-3.2MLS)
     Route: 065
     Dates: end: 202210
  6. CARBIDOPA\LEVODOPA [Suspect]
     Active Substance: CARBIDOPA\LEVODOPA
     Dosage: MD: 4.2MLS, ED:3.9MLS, CR: 6.3MLS, 20MGS/5MGS
     Route: 065
     Dates: end: 2023
  7. CARBIDOPA\LEVODOPA [Suspect]
     Active Substance: CARBIDOPA\LEVODOPA
     Dosage: UNK (START DATE: ??-???-2023)
     Route: 065
  8. CARBIDOPA\LEVODOPA [Suspect]
     Active Substance: CARBIDOPA\LEVODOPA
     Dosage: REDUCTION IN NIGHT TIME DOSES
     Route: 065
     Dates: start: 2023
  9. CARBIDOPA\LEVODOPA [Suspect]
     Active Substance: CARBIDOPA\LEVODOPA
     Dosage: 20MGS/5MGS
     Route: 065
     Dates: start: 2023
  10. CARBIDOPA\LEVODOPA [Suspect]
     Active Substance: CARBIDOPA\LEVODOPA
     Dosage: REDUCTION IN NIGHT TIME DOSES
     Route: 065
     Dates: start: 2022
  11. QUETIAPINE FUMARATE [Concomitant]
     Active Substance: QUETIAPINE FUMARATE
     Indication: Psychotic disorder
     Dosage: 50 MILLIGRAM, QD
     Route: 065
  12. QUETIAPINE FUMARATE [Concomitant]
     Active Substance: QUETIAPINE FUMARATE
     Dosage: UNK
     Route: 065
  13. MEMANTINE HYDROCHLORIDE [Concomitant]
     Active Substance: MEMANTINE HYDROCHLORIDE
     Indication: Product used for unknown indication
     Dosage: 10 MILLIGRAM, QD
     Route: 065
  14. MEMANTINE HYDROCHLORIDE [Concomitant]
     Active Substance: MEMANTINE HYDROCHLORIDE
     Dosage: UNK
     Route: 065
  15. PREGABALIN [Concomitant]
     Active Substance: PREGABALIN
     Indication: Neuralgia
     Dosage: 1.25 MILLIGRAM
     Route: 065
  16. PREGABALIN [Concomitant]
     Active Substance: PREGABALIN
     Dosage: 175 MILLIGRAM, QD
     Route: 065
  17. PREGABALIN [Concomitant]
     Active Substance: PREGABALIN
     Dosage: 150 MILLIGRAM, QD
     Route: 065
  18. ACETAMINOPHEN [Concomitant]
     Active Substance: ACETAMINOPHEN
     Indication: Pain
     Dosage: 500 MILLIGRAM
     Route: 065
  19. RIVASTIGMINE [Concomitant]
     Active Substance: RIVASTIGMINE
     Indication: Parkinson^s disease
     Dosage: 4.6 MILLIGRAM
     Route: 065
  20. RIVASTIGMINE [Concomitant]
     Active Substance: RIVASTIGMINE
     Dosage: 9.5 MILLIGRAM, QD
     Route: 065
  21. INSULIN NOS [Concomitant]
     Active Substance: INSULIN NOS
     Indication: Product used for unknown indication
     Dosage: UNK
     Route: 065
  22. LANSOPRAZOLE [Concomitant]
     Active Substance: LANSOPRAZOLE
     Indication: Product used for unknown indication
     Dosage: UNK
     Route: 065
  23. BISACODYL [Concomitant]
     Active Substance: BISACODYL
     Indication: Product used for unknown indication
     Dosage: UNK
     Route: 065
  24. MELATONIN [Concomitant]
     Active Substance: MELATONIN
     Indication: Product used for unknown indication
     Dosage: 8 MILLIGRAM, QD
     Route: 065

REACTIONS (45)
  - Hip fracture [Unknown]
  - Knee arthroplasty [Unknown]
  - Device kink [Recovered/Resolved]
  - Fall [Not Recovered/Not Resolved]
  - Mental impairment [Not Recovered/Not Resolved]
  - Parkinson^s disease [Not Recovered/Not Resolved]
  - Dystonia [Not Recovered/Not Resolved]
  - Hallucination [Recovering/Resolving]
  - Diabetes mellitus [Unknown]
  - Mobility decreased [Not Recovered/Not Resolved]
  - Decubitus ulcer [Unknown]
  - Speech disorder [Not Recovered/Not Resolved]
  - Night sweats [Unknown]
  - On and off phenomenon [Recovering/Resolving]
  - Neuralgia [Not Recovered/Not Resolved]
  - Muscle spasms [Not Recovered/Not Resolved]
  - Nightmare [Unknown]
  - General physical health deterioration [Not Recovered/Not Resolved]
  - Paranoia [Not Recovered/Not Resolved]
  - Muscle rigidity [Not Recovered/Not Resolved]
  - Abnormal dreams [Unknown]
  - Poor quality sleep [Unknown]
  - Confusional state [Recovering/Resolving]
  - Hyperhidrosis [Unknown]
  - Weight decreased [Not Recovered/Not Resolved]
  - Balance disorder [Unknown]
  - Memory impairment [Unknown]
  - Dyskinesia [Not Recovered/Not Resolved]
  - Cognitive disorder [Not Recovered/Not Resolved]
  - Asthenia [Unknown]
  - Incontinence [Unknown]
  - Tremor [Not Recovered/Not Resolved]
  - Agitation [Not Recovered/Not Resolved]
  - Aggression [Not Recovered/Not Resolved]
  - Anxiety [Not Recovered/Not Resolved]
  - Device occlusion [Recovered/Resolved]
  - Device dislocation [Not Recovered/Not Resolved]
  - Device occlusion [Not Recovered/Not Resolved]
  - Device alarm issue [Not Recovered/Not Resolved]
  - Device issue [Unknown]
  - Musculoskeletal stiffness [Unknown]
  - Constipation [Not Recovered/Not Resolved]
  - Intentional medical device removal by patient [Not Recovered/Not Resolved]
  - Extra dose administered [Not Recovered/Not Resolved]
  - Therapeutic response shortened [Unknown]

NARRATIVE: CASE EVENT DATE: 20210101
